FAERS Safety Report 13363106 (Version 4)
Quarter: 2017Q2

REPORT INFORMATION
  Report Type: Report from Study
  Country: None (occurrence: US)
  Receive Date: 20170323
  Receipt Date: 20170416
  Transmission Date: 20170830
  Serious: Yes (Hospitalization, Other)
  Sender: FDA-Public Use
  Company Number: US-ABBVIE-17K-163-1914207-00

PATIENT
  Age: 62 Year
  Sex: Male
  Weight: 108.96 kg

DRUGS (5)
  1. CARVEDILOL. [Concomitant]
     Active Substance: CARVEDILOL
     Indication: HYPERTENSION
  2. LANTUS [Concomitant]
     Active Substance: INSULIN GLARGINE
     Indication: DIABETES MELLITUS
  3. HUMIRA [Suspect]
     Active Substance: ADALIMUMAB
     Indication: PSORIASIS
     Route: 058
     Dates: start: 2015, end: 20161210
  4. PRAVASTATIN. [Concomitant]
     Active Substance: PRAVASTATIN
     Indication: BLOOD CHOLESTEROL ABNORMAL
  5. HUMALOG R [Concomitant]
     Indication: DIABETES MELLITUS

REACTIONS (14)
  - Oesophageal injury [Recovering/Resolving]
  - Anaemia [Recovering/Resolving]
  - Rib fracture [Recovered/Resolved]
  - Fibula fracture [Recovering/Resolving]
  - Traumatic renal injury [Unknown]
  - Electrolyte imbalance [Recovering/Resolving]
  - Dysphagia [Recovered/Resolved]
  - Kidney perforation [Recovering/Resolving]
  - Acute kidney injury [Recovering/Resolving]
  - Chronic kidney disease [Not Recovered/Not Resolved]
  - Renal haematoma [Recovering/Resolving]
  - Road traffic accident [Recovered/Resolved]
  - Concussion [Recovered/Resolved]
  - Psoriasis [Not Recovered/Not Resolved]

NARRATIVE: CASE EVENT DATE: 201612
